FAERS Safety Report 8175031-9 (Version None)
Quarter: 2012Q1

REPORT INFORMATION
  Report Type: 
  Country: None (occurrence: None)
  Receive Date: 20120229
  Receipt Date: 20120221
  Transmission Date: 20120608
  Serious: No
  Sender: FDA-Public Use
  Company Number: PHEH2012US003216

PATIENT
  Sex: Female
  Weight: 42.63 kg

DRUGS (9)
  1. ZOMETA [Suspect]
     Dosage: UNK UKN, UNK
     Dates: start: 20111201
  2. PREDNISONE TAB [Concomitant]
  3. VITAMINS NOS [Concomitant]
  4. EYE DROPS [Concomitant]
  5. CALMAX [Suspect]
  6. RECLAST [Suspect]
     Indication: OSTEOPOROSIS
     Dosage: UNK UKN, UNK
     Route: 042
     Dates: start: 20111201
  7. SUPER C [Suspect]
  8. RESTASIS [Concomitant]
  9. NAPROXEN [Concomitant]
     Indication: ARTHRITIS
     Dosage: 500 MG, BID
     Route: 048

REACTIONS (5)
  - ABDOMINAL DISCOMFORT [None]
  - DIARRHOEA [None]
  - NAUSEA [None]
  - MUSCLE SPASMS [None]
  - CHILLS [None]
